FAERS Safety Report 12772700 (Version 2)
Quarter: 2016Q4

REPORT INFORMATION
  Report Type: Report from Study
  Country: BR (occurrence: BR)
  Receive Date: 20160922
  Receipt Date: 20161026
  Transmission Date: 20170207
  Serious: Yes (Disabling, Other)
  Sender: FDA-Public Use
  Company Number: BR-JNJFOC-20160921555

PATIENT
  Age: 57 Year
  Sex: Female
  Weight: 82 kg

DRUGS (2)
  1. IBUPROFEN. [Concomitant]
     Active Substance: IBUPROFEN
     Route: 065
  2. SIMPONI [Suspect]
     Active Substance: GOLIMUMAB
     Indication: RHEUMATOID ARTHRITIS
     Route: 058
     Dates: start: 20160806

REACTIONS (7)
  - Hypersensitivity [Unknown]
  - Varicella [Unknown]
  - Hypertension [Not Recovered/Not Resolved]
  - Skin exfoliation [Unknown]
  - Wound complication [Unknown]
  - Dry skin [Unknown]
  - Pain [Unknown]

NARRATIVE: CASE EVENT DATE: 201609
